FAERS Safety Report 7002627-X (Version None)
Quarter: 2010Q3

REPORT INFORMATION
  Report Type: 
  Country: None (occurrence: None)
  Receive Date: 20100917
  Receipt Date: 20100917
  Transmission Date: 20110219
  Serious: Yes (Hospitalization)
  Sender: FDA-Public Use
  Company Number: None

PATIENT
  Age: 72 Year
  Sex: Male
  Weight: 124 kg

DRUGS (2)
  1. SIMVASTATIN [Suspect]
     Dosage: 80MG HS PO
     Route: 048
     Dates: start: 20091224, end: 20100201
  2. GEMFIBROZIL [Suspect]
     Dosage: 600MG BID PO
     Route: 048
     Dates: start: 20060221, end: 20100201

REACTIONS (4)
  - BONE PAIN [None]
  - GAIT DISTURBANCE [None]
  - RENAL FAILURE ACUTE [None]
  - RHABDOMYOLYSIS [None]
